FAERS Safety Report 4708345-2 (Version None)
Quarter: 2005Q3

REPORT INFORMATION
  Report Type: 
  Country: None (occurrence: None)
  Receive Date: 20050705
  Receipt Date: 20050623
  Transmission Date: 20060218
  Serious: Yes (Hospitalization)
  Sender: FDA-Public Use
  Company Number: 2005091842

PATIENT
  Age: 23 Year
  Sex: Female

DRUGS (2)
  1. ROGAINE [Suspect]
     Indication: HYPOTRICHOSIS
     Dosage: LESS THAN 1 ML QD TOPICAL
     Route: 061
  2. CILEST (ETHINYLESTRADIOL, NORGESTIMATE) [Concomitant]

REACTIONS (8)
  - APPLICATION SITE IRRITATION [None]
  - DIZZINESS [None]
  - DRUG INEFFECTIVE [None]
  - HAIR TEXTURE ABNORMAL [None]
  - LOSS OF CONSCIOUSNESS [None]
  - PRURITUS [None]
  - SKIN EXFOLIATION [None]
  - SYNCOPE [None]
